FAERS Safety Report 8495717-6 (Version None)
Quarter: 2012Q3

REPORT INFORMATION
  Report Type: 
  Country: None (occurrence: None)
  Receive Date: 20120709
  Receipt Date: 20120629
  Transmission Date: 20120928
  Serious: Yes (Hospitalization)
  Sender: FDA-Public Use
  Company Number: JP-ROCHE-1083968

PATIENT
  Sex: Female

DRUGS (9)
  1. ADVAIR DISKUS 100/50 [Concomitant]
     Dates: start: 20040101
  2. PREDNISOLONE [Concomitant]
     Dates: start: 20100101
  3. FOSAMAX [Concomitant]
  4. LASIX [Concomitant]
  5. RABEPRAZOLE SODIUM [Concomitant]
  6. ALDACTONE [Concomitant]
  7. SINGULAIR [Concomitant]
     Dates: start: 20040101
  8. UNIPHYL [Concomitant]
     Dates: start: 20040101
  9. OMALIZUMAB [Suspect]
     Indication: ASTHMA
     Route: 058
     Dates: start: 20110509

REACTIONS (1)
  - ASTHMA [None]
